FAERS Safety Report 7261953-X (Version None)
Quarter: 2011Q1

REPORT INFORMATION
  Report Type: 
  Country: None (occurrence: None)
  Receive Date: 20110120
  Receipt Date: 20101101
  Transmission Date: 20110831
  Serious: No
  Sender: FDA-Public Use
  Company Number: US-000117

PATIENT
  Age: 89 Year
  Sex: Male
  Weight: 68.0396 kg

DRUGS (4)
  1. UNSPECIFIED ACID REFLUX MEDICATION [Concomitant]
  2. UNSPECIFIED HEART MEDICATION (UNSPECIFIED HEART MEDICATION) [Concomitant]
  3. ZENPEP [Suspect]
     Dosage: 10000 IU 3X/WEEK, 10,000 UNITS ON MONDAY,WEDNESAY, + FRIDAY ORAL
     Route: 048
     Dates: start: 20101001
  4. ANTIHYPERTENSIVES [Concomitant]

REACTIONS (3)
  - HEADACHE [None]
  - SOMNOLENCE [None]
  - LISTLESS [None]
